FAERS Safety Report 10061538 (Version 1)
Quarter: 2014Q2

REPORT INFORMATION
  Report Type: Spontaneous
  Country: US (occurrence: None)
  Receive Date: 20140404
  Receipt Date: 20140404
  Transmission Date: 20141212
  Serious: Yes (Hospitalization, Other)
  Sender: FDA-Public Use
  Company Number: None

PATIENT
  Age: 87 Year
  Sex: Female
  Weight: 65.32 kg

DRUGS (11)
  1. CELEBREX [Suspect]
     Indication: ARTHRALGIA
     Route: 048
     Dates: start: 20100301, end: 20140130
  2. DIOVAN [Concomitant]
  3. SPIRONOLACTONE [Concomitant]
  4. LOVASTATIN [Concomitant]
  5. ACIPHEX [Concomitant]
  6. TYLENOL EXTRA STRENGTH [Concomitant]
  7. LUTEIN [Concomitant]
  8. B 12 [Concomitant]
  9. VITAMIN E [Concomitant]
  10. FISH OIL,D3 [Concomitant]
  11. FERROUS SULFATE(IRON) [Concomitant]

REACTIONS (4)
  - Ulcer haemorrhage [None]
  - Diarrhoea [None]
  - Syncope [None]
  - Blood disorder [None]
